FAERS Safety Report 4440853-4 (Version None)
Quarter: 2004Q3

REPORT INFORMATION
  Report Type: 
  Country: None (occurrence: None)
  Receive Date: 20040903
  Receipt Date: 20040810
  Transmission Date: 20050211
  Serious: Yes (Hospitalization)
  Sender: FDA-Public Use
  Company Number: 2004015076

PATIENT
  Age: 79 Year
  Sex: Female
  Weight: 80 kg

DRUGS (4)
  1. QUILONUM RETARD [Suspect]
     Dosage: .5TAB TWICE PER DAY
     Route: 048
  2. ARELIX [Concomitant]
     Dosage: 1TAB IN THE MORNING
     Route: 048
  3. DOXEPIN HCL [Concomitant]
     Dosage: 1TAB PER DAY
     Route: 048
  4. BIPERIDEN HYDROCHLORIDE TAB [Concomitant]
     Dosage: 1TAB PER DAY
     Route: 048

REACTIONS (4)
  - APATHY [None]
  - CONFUSIONAL STATE [None]
  - DISORIENTATION [None]
  - DRUG LEVEL INCREASED [None]
